FAERS Safety Report 6522923-X (Version None)
Quarter: 2009Q4

REPORT INFORMATION
  Report Type: 
  Country: None (occurrence: None)
  Receive Date: 20091230
  Receipt Date: 20091120
  Transmission Date: 20100525
  Serious: Yes (Death, Life-Threatening, Hospitalization, Other)
  Sender: FDA-Public Use
  Company Number: US-BAXTER-2009BH011753

PATIENT
  Age: 66 Year
  Sex: Female
  Weight: 75 kg

DRUGS (18)
  1. HEPARIN SODIUM INJECTION [Suspect]
     Indication: ANGIOGRAM
     Route: 040
     Dates: start: 20070822, end: 20070822
  2. HEPARIN SODIUM INJECTION [Suspect]
     Indication: PROPHYLAXIS
     Route: 040
     Dates: start: 20070822, end: 20070822
  3. HEPARIN SODIUM INJECTION [Suspect]
     Route: 040
     Dates: start: 20070824, end: 20070824
  4. HEPARIN SODIUM 5,000 UNITS IN DEXTROSE 5% [Suspect]
     Indication: ANGIOGRAM
     Route: 040
     Dates: start: 20070822, end: 20070827
  5. HEPARIN SODIUM 5,000 UNITS IN DEXTROSE 5% [Suspect]
     Indication: PROPHYLAXIS
     Route: 040
     Dates: start: 20070822, end: 20070827
  6. AMLODIPINE [Concomitant]
     Indication: DRUG USE FOR UNKNOWN INDICATION
     Route: 048
  7. DYAZIDE [Concomitant]
     Indication: DRUG USE FOR UNKNOWN INDICATION
     Route: 048
  8. PREMARIN [Concomitant]
     Indication: DRUG USE FOR UNKNOWN INDICATION
     Route: 048
  9. LEVOTHYROXINE SODIUM [Concomitant]
     Indication: DRUG USE FOR UNKNOWN INDICATION
     Route: 048
  10. HYDROCORTISONE [Concomitant]
     Indication: DRUG USE FOR UNKNOWN INDICATION
     Route: 065
  11. DERMA-SMOOTHE/FS [Concomitant]
     Indication: DRUG USE FOR UNKNOWN INDICATION
     Route: 065
  12. KETOCONAZOLE [Concomitant]
     Indication: DRUG USE FOR UNKNOWN INDICATION
     Route: 065
  13. NORVASC [Concomitant]
     Indication: DRUG USE FOR UNKNOWN INDICATION
     Route: 048
  14. VITAMIN E [Concomitant]
     Indication: DRUG USE FOR UNKNOWN INDICATION
     Route: 065
  15. VITAMIN B COMPLEX WITH C [Concomitant]
     Indication: DRUG USE FOR UNKNOWN INDICATION
     Route: 065
  16. VANCOMYCIN [Concomitant]
     Indication: DRUG USE FOR UNKNOWN INDICATION
     Route: 065
  17. ZOSYN [Concomitant]
     Indication: DRUG USE FOR UNKNOWN INDICATION
     Route: 042
  18. LASIX [Concomitant]
     Indication: DRUG USE FOR UNKNOWN INDICATION
     Route: 065

REACTIONS (13)
  - ABDOMINAL PAIN [None]
  - ARTERIOSCLEROSIS [None]
  - CARDIAC ARREST [None]
  - CARDIAC FAILURE [None]
  - CORONARY ARTERY DISEASE [None]
  - HYPERSENSITIVITY [None]
  - HYPERTENSION [None]
  - HYPOTENSION [None]
  - PULMONARY OEDEMA [None]
  - RENAL FAILURE ACUTE [None]
  - RETROPERITONEAL HAEMORRHAGE [None]
  - SEPSIS [None]
  - URINARY TRACT INFECTION [None]
